FAERS Safety Report 20060306 (Version 2)
Quarter: 2021Q4

REPORT INFORMATION
  Report Type: Spontaneous
  Country: US (occurrence: None)
  Receive Date: 20211112
  Receipt Date: 20211224
  Transmission Date: 20220303
  Serious: No
  Sender: FDA-Public Use
  Company Number: 2021A790726

PATIENT
  Age: 26 Year
  Sex: Female

DRUGS (1)
  1. FASENRA [Suspect]
     Active Substance: BENRALIZUMAB
     Indication: Asthma
     Route: 058
     Dates: start: 20211007, end: 20211021

REACTIONS (2)
  - Condition aggravated [Recovering/Resolving]
  - Respiratory tract irritation [Recovering/Resolving]

NARRATIVE: CASE EVENT DATE: 20211021
